FAERS Safety Report 24299927 (Version 1)
Quarter: 2024Q3

REPORT INFORMATION
  Report Type: Spontaneous
  Country: US (occurrence: None)
  Receive Date: 20240908
  Receipt Date: 20240908
  Transmission Date: 20241017
  Serious: No
  Sender: Public
  Company Number: None

PATIENT
  Age: 60 Year
  Sex: Male
  Weight: 62.55 kg

DRUGS (8)
  1. LAMOTRIGINE [Suspect]
     Active Substance: LAMOTRIGINE
     Indication: Seizure
     Dosage: 301MA TABLETS AT BEDTIME ORAL
     Route: 048
  2. Daily krill or fish oil [Concomitant]
  3. VITAMINS [Concomitant]
     Active Substance: VITAMINS
  4. nightly nasal sprays [Concomitant]
  5. XYLITOL [Concomitant]
     Active Substance: XYLITOL
  6. SALINE [Concomitant]
     Active Substance: SODIUM CHLORIDE
  7. ALKALOL [Concomitant]
  8. PEPPERMINT OIL [Concomitant]
     Active Substance: PEPPERMINT OIL

REACTIONS (6)
  - Drug effect less than expected [None]
  - Sinus disorder [None]
  - Pollakiuria [None]
  - Flatulence [None]
  - Sinus operation [None]
  - Insomnia [None]

NARRATIVE: CASE EVENT DATE: 20240907
